FAERS Safety Report 19165099 (Version 1)
Quarter: 2021Q2

REPORT INFORMATION
  Report Type: Spontaneous
  Country: SE (occurrence: SE)
  Receive Date: 20210421
  Receipt Date: 20210421
  Transmission Date: 20210717
  Serious: Yes (Other)
  Sender: FDA-Public Use
  Company Number: SE-TEVA-2021-SE-1902381

PATIENT
  Age: 20 Year
  Sex: Female

DRUGS (7)
  1. LAMOTRIGINE. [Concomitant]
     Active Substance: LAMOTRIGINE
     Dates: start: 20200813
  2. DIVISUN [Concomitant]
     Active Substance: CHOLECALCIFEROL
  3. CITALOPRAM [Concomitant]
     Active Substance: CITALOPRAM HYDROBROMIDE
  4. AJOVY [Suspect]
     Active Substance: FREMANEZUMAB-VFRM
     Indication: MIGRAINE
     Dosage: INJ / 4TH WEEK
     Dates: start: 20210210
  5. GESTRINA [Concomitant]
  6. BETOLVEX [Concomitant]
  7. ALMOGRAN [Concomitant]
     Active Substance: ALMOTRIPTAN MALATE

REACTIONS (1)
  - Diarrhoea [Recovered/Resolved]

NARRATIVE: CASE EVENT DATE: 20210211
